FAERS Safety Report 8003558-9 (Version None)
Quarter: 2011Q4

REPORT INFORMATION
  Report Type: 
  Country: None (occurrence: None)
  Receive Date: 20111222
  Receipt Date: 20111215
  Transmission Date: 20120403
  Serious: Yes (Life-Threatening)
  Sender: FDA-Public Use
  Company Number: NL-SANOFI-AVENTIS-2011SA068656

PATIENT
  Age: 56 Year
  Sex: Male

DRUGS (10)
  1. FLUDARA [Suspect]
     Route: 048
     Dates: start: 20100908, end: 20100910
  2. CYCLOPHOSPHAMIDE [Suspect]
     Route: 048
     Dates: start: 20101004, end: 20101006
  3. CYCLOPHOSPHAMIDE [Suspect]
     Route: 048
     Dates: start: 20100908, end: 20100910
  4. VALACICLOVIR [Concomitant]
     Dates: start: 20100906, end: 20100918
  5. LACTULOSE [Concomitant]
     Dates: start: 20101012, end: 20101019
  6. FLUDARA [Suspect]
     Route: 048
     Dates: start: 20101004, end: 20101006
  7. CAMPATH [Suspect]
     Route: 065
     Dates: start: 20100907, end: 20100909
  8. SULFAMETHOXAZOLE AND TRIMETHOPRIM [Concomitant]
     Dates: start: 20100906, end: 20101019
  9. CAMPATH [Suspect]
     Route: 058
     Dates: start: 20101004, end: 20101004
  10. FLUCONAZOLE [Concomitant]
     Dates: start: 20100906, end: 20110202

REACTIONS (1)
  - IDIOPATHIC THROMBOCYTOPENIC PURPURA [None]
